FAERS Safety Report 8606284-8 (Version None)
Quarter: 2012Q3

REPORT INFORMATION
  Report Type: 
  Country: None (occurrence: None)
  Receive Date: 20120820
  Receipt Date: 20120815
  Transmission Date: 20120928
  Serious: Yes (Other)
  Sender: FDA-Public Use
  Company Number: CA-ROCHE-1102592

PATIENT
  Age: 51 Year
  Sex: Female

DRUGS (2)
  1. XELODA [Suspect]
     Indication: PRODUCT USED FOR UNKNOWN INDICATION
     Route: 065
  2. TYKERB [Suspect]
     Indication: PRODUCT USED FOR UNKNOWN INDICATION
     Route: 048

REACTIONS (6)
  - BREAST CANCER METASTATIC [None]
  - NASAL OEDEMA [None]
  - DISEASE PROGRESSION [None]
  - ERYTHEMA [None]
  - ACNE [None]
  - DIARRHOEA [None]
